FAERS Safety Report 22986583 (Version 2)
Quarter: 2023Q4

REPORT INFORMATION
  Report Type: Spontaneous
  Country: US (occurrence: US)
  Receive Date: 20230926
  Receipt Date: 20231003
  Transmission Date: 20240109
  Serious: Yes (Life-Threatening, Hospitalization, Other)
  Sender: FDA-Public Use
  Company Number: US-TORRENT-00012863

PATIENT
  Age: 58 Year
  Sex: Female

DRUGS (1)
  1. VENLAFAXINE [Suspect]
     Active Substance: VENLAFAXINE HYDROCHLORIDE
     Indication: Product used for unknown indication
     Dosage: INGESTING 196 VENLAFAXINE 150MG ER CAPSULES.
     Route: 048

REACTIONS (10)
  - Cardiogenic shock [Recovered/Resolved]
  - Generalised tonic-clonic seizure [Unknown]
  - Intentional overdose [Unknown]
  - Acute kidney injury [Unknown]
  - Ischaemic hepatitis [Unknown]
  - Ventricular hypokinesia [Unknown]
  - Electrocardiogram QRS complex prolonged [Unknown]
  - Tachycardia [Unknown]
  - Hypotension [Unknown]
  - Ejection fraction decreased [Unknown]
